FAERS Safety Report 21643920 (Version 9)
Quarter: 2025Q1

REPORT INFORMATION
  Report Type: Report from Study
  Country: DE (occurrence: DE)
  Receive Date: 20221125
  Receipt Date: 20250217
  Transmission Date: 20250409
  Serious: Yes (Hospitalization, Other)
  Sender: ROCHE
  Company Number: DE-ROCHE-2721547

PATIENT
  Age: 38 Year
  Sex: Female

DRUGS (20)
  1. OCREVUS [Suspect]
     Active Substance: OCRELIZUMAB
     Indication: Relapsing-remitting multiple sclerosis
     Dosage: 600 MG 174 DAYS
     Route: 040
     Dates: start: 20201109
  2. OCREVUS [Suspect]
     Active Substance: OCRELIZUMAB
     Route: 040
     Dates: start: 20201123
  3. OCREVUS [Suspect]
     Active Substance: OCRELIZUMAB
     Route: 040
     Dates: start: 20210510
  4. INFLUENZA VIRUS VACCINE [Suspect]
     Active Substance: INFLUENZA VIRUS VACCINE
     Indication: Product used for unknown indication
     Route: 065
  5. COMIRNATY (TOZINAMERAN) [Suspect]
     Active Substance: TOZINAMERAN
     Indication: COVID-19 prophylaxis
     Route: 065
  6. COMIRNATY (TOZINAMERAN) [Suspect]
     Active Substance: TOZINAMERAN
     Route: 065
  7. BOTOX [Suspect]
     Active Substance: ONABOTULINUMTOXINA
     Indication: Product used for unknown indication
     Route: 065
  8. NAPROXEN [Concomitant]
     Active Substance: NAPROXEN
  9. POLYETHYLENE GLYCOLS [Concomitant]
     Active Substance: POLYETHYLENE GLYCOLS
  10. DALFAMPRIDINE [Concomitant]
     Active Substance: DALFAMPRIDINE
  11. CITALOPRAM [Concomitant]
     Active Substance: CITALOPRAM
  12. INCENSE [Concomitant]
     Dosage: 2X2
  13. BACLOFEN [Concomitant]
     Active Substance: BACLOFEN
  14. VITAMIN D3 [Concomitant]
     Active Substance: CHOLECALCIFEROL
     Dosage: 2X1
  15. RUBAX [Concomitant]
  16. FRANKINCENSE [Concomitant]
     Active Substance: FRANKINCENSE
  17. FRANKINCENSE [Concomitant]
     Active Substance: FRANKINCENSE
  18. SAB SIMPLEX [Concomitant]
  19. VENLAFAXINE [Concomitant]
     Active Substance: VENLAFAXINE HYDROCHLORIDE
  20. NABIXIMOLS [Concomitant]
     Active Substance: NABIXIMOLS

REACTIONS (27)
  - Fatigue [Recovered/Resolved]
  - Nausea [Recovered/Resolved]
  - Dizziness [Recovered/Resolved]
  - Magnetic resonance imaging spinal abnormal [Not Recovered/Not Resolved]
  - Chills [Recovered/Resolved]
  - Asthenia [Recovered/Resolved]
  - Blister [Recovered/Resolved]
  - Noninfective gingivitis [Recovered/Resolved]
  - Vaccination failure [Not Recovered/Not Resolved]
  - Diplegia [Recovered/Resolved]
  - Muscular weakness [Recovering/Resolving]
  - Chest pain [Recovered/Resolved]
  - Fall [Unknown]
  - Immunosuppression [Not Recovered/Not Resolved]
  - Bone contusion [Unknown]
  - Diarrhoea [Recovered/Resolved]
  - COVID-19 [Not Recovered/Not Resolved]
  - Abdominal pain upper [Recovered/Resolved]
  - Musculoskeletal stiffness [Recovered/Resolved]
  - Influenza like illness [Recovered/Resolved]
  - Nasopharyngitis [Recovered/Resolved]
  - Skin abrasion [Recovered/Resolved]
  - Vomiting [Recovered/Resolved]
  - Gait disturbance [Not Recovered/Not Resolved]
  - Endometrial hyperplasia [Recovered/Resolved]
  - Ligament sprain [Recovered/Resolved]
  - Cystitis noninfective [Recovered/Resolved]

NARRATIVE: CASE EVENT DATE: 20201109
